FAERS Safety Report 8347029-9 (Version None)
Quarter: 2012Q2

REPORT INFORMATION
  Report Type: 
  Country: None (occurrence: None)
  Receive Date: 20120507
  Receipt Date: 20120507
  Transmission Date: 20120825
  Serious: Yes (Hospitalization)
  Sender: FDA-Public Use
  Company Number: None

PATIENT
  Sex: Male
  Weight: 110.9 kg

DRUGS (1)
  1. TAXOTERE [Suspect]
     Dosage: 131.45 MG
     Dates: end: 20120425

REACTIONS (5)
  - ASTHENIA [None]
  - SYNCOPE [None]
  - FEELING ABNORMAL [None]
  - TACHYCARDIA [None]
  - HYPOTENSION [None]
